FAERS Safety Report 5333770-9 (Version None)
Quarter: 2007Q2

REPORT INFORMATION
  Report Type: 
  Country: None (occurrence: None)
  Receive Date: 20070524
  Receipt Date: 20070514
  Transmission Date: 20071010
  Serious: Yes (Life-Threatening, Hospitalization, Disabling, Other)
  Sender: FDA-Public Use
  Company Number: GB-PFIZER INC-2007039615

PATIENT
  Age: 57 Year
  Sex: Male
  Weight: 90 kg

DRUGS (2)
  1. SALAZOPYRIN [Suspect]
     Route: 048
  2. HUMIRA [Suspect]
     Route: 058
     Dates: start: 20060901, end: 20061127

REACTIONS (4)
  - GAIT DISTURBANCE [None]
  - MUSCULAR WEAKNESS [None]
  - RHEUMATOID VASCULITIS [None]
  - WEIGHT DECREASED [None]
